FAERS Safety Report 6095123-8 (Version None)
Quarter: 2009Q1

REPORT INFORMATION
  Report Type: 
  Country: None (occurrence: None)
  Receive Date: 20090227
  Receipt Date: 20080124
  Transmission Date: 20090719
  Serious: No
  Sender: FDA-Public Use
  Company Number: A0705200A

PATIENT
  Age: 39 Year
  Sex: Female

DRUGS (5)
  1. LAMICTAL [Suspect]
     Indication: BIPOLAR DISORDER
     Dosage: 150MG PER DAY
     Route: 048
     Dates: start: 20050101
  2. ZOLOFT [Concomitant]
  3. KLONOPIN [Concomitant]
  4. VISTARIL [Concomitant]
  5. METFORMIN [Concomitant]

REACTIONS (1)
  - RASH [None]
